FAERS Safety Report 16215308 (Version 1)
Quarter: 2019Q2

REPORT INFORMATION
  Report Type: Spontaneous
  Country: US (occurrence: US)
  Receive Date: 20190419
  Receipt Date: 20190419
  Transmission Date: 20190711
  Serious: No
  Sender: FDA-Public Use
  Company Number: US-TEVA-2019-US-1033856

PATIENT
  Sex: Female
  Weight: 54 kg

DRUGS (8)
  1. CYMBALTA [Concomitant]
     Active Substance: DULOXETINE HYDROCHLORIDE
  2. PLAQUENIL [Concomitant]
     Active Substance: HYDROXYCHLOROQUINE SULFATE
  3. NIFEDIPINE. [Concomitant]
     Active Substance: NIFEDIPINE
  4. LISINOPRIL. [Concomitant]
     Active Substance: LISINOPRIL
  5. ATORVASTATIN [Concomitant]
     Active Substance: ATORVASTATIN
  6. ABILIFY [Concomitant]
     Active Substance: ARIPIPRAZOLE
  7. NUVIGIL [Suspect]
     Active Substance: ARMODAFINIL
     Indication: NARCOLEPSY
     Route: 065
  8. NUVIGIL [Suspect]
     Active Substance: ARMODAFINIL
     Indication: SLEEP APNOEA SYNDROME

REACTIONS (5)
  - Insomnia [Unknown]
  - Weight decreased [Unknown]
  - Eating disorder [Unknown]
  - Drug ineffective [Unknown]
  - Psychomotor hyperactivity [Unknown]
